FAERS Safety Report 8533771-3 (Version None)
Quarter: 2012Q3

REPORT INFORMATION
  Report Type: 
  Country: None (occurrence: None)
  Receive Date: 20120711
  Receipt Date: 20111003
  Transmission Date: 20120928
  Serious: No
  Sender: FDA-Public Use
  Company Number: A11-071

PATIENT

DRUGS (2)
  1. ALLERGENIC EXTRACTS OF VARIOUS MOLDS, DUSY MITES AND [Suspect]
     Indication: RHINITIS ALLERGIC
     Dosage: UNKNOWN
  2. GERMAN COCROACH [Suspect]

REACTIONS (2)
  - INJECTION SITE REACTION [None]
  - ADVERSE DRUG REACTION [None]
